FAERS Safety Report 10578904 (Version 1)
Quarter: 2014Q4

REPORT INFORMATION
  Report Type: Spontaneous
  Country: US (occurrence: US)
  Receive Date: 20141112
  Receipt Date: 20141112
  Transmission Date: 20150529
  Serious: No
  Sender: FDA-Public Use
  Company Number: US-PFIZER INC-2014306180

PATIENT
  Age: 62 Year
  Sex: Female
  Weight: 61.2 kg

DRUGS (8)
  1. NEURONTIN [Suspect]
     Active Substance: GABAPENTIN
     Dosage: 300 MG, EVERY EVENING
     Dates: end: 201409
  2. CYCLOBENZAPRINE [Concomitant]
     Active Substance: CYCLOBENZAPRINE
     Dosage: 10 MG, PRN
  3. VITAMIN D [Concomitant]
     Active Substance: CHOLECALCIFEROL
     Dosage: UNK
  4. AMPYRA [Suspect]
     Active Substance: DALFAMPRIDINE
     Indication: GAIT DISTURBANCE
     Dosage: 10 MG, EVERY 12 HOURS
     Route: 048
     Dates: start: 2014, end: 201409
  5. HYDROCODONE [Concomitant]
     Active Substance: HYDROCODONE
     Dosage: UNK, AS NEEDED
  6. BACLOFEN. [Suspect]
     Active Substance: BACLOFEN
     Dosage: 10 MG, DAILY
     Dates: start: 201410
  7. NEURONTIN [Suspect]
     Active Substance: GABAPENTIN
     Indication: MUSCLE TIGHTNESS
     Dosage: 100 MG, EVERY EVENING
     Dates: start: 201408
  8. NEURONTIN [Suspect]
     Active Substance: GABAPENTIN
     Dosage: 200 MG, EVERY EVENING

REACTIONS (6)
  - Stomatitis [Recovered/Resolved]
  - Oral pain [Recovered/Resolved]
  - Drug ineffective [Unknown]
  - Pain in jaw [Recovered/Resolved]
  - Condition aggravated [Recovered/Resolved]
  - Muscle tightness [Not Recovered/Not Resolved]

NARRATIVE: CASE EVENT DATE: 2014
